FAERS Safety Report 10799127 (Version 1)
Quarter: 2015Q1

REPORT INFORMATION
  Report Type: Spontaneous
  Country: US (occurrence: US)
  Receive Date: 20150216
  Receipt Date: 20150216
  Transmission Date: 20150721
  Serious: No
  Sender: FDA-Public Use
  Company Number: US-ALLERGAN-1401327US

PATIENT
  Age: 6 Decade
  Sex: Female

DRUGS (2)
  1. REFRESH TEARS [Concomitant]
     Active Substance: CARBOXYMETHYLCELLULOSE SODIUM
     Indication: DRY EYE
     Dosage: 2 GTT, PRN
     Route: 047
  2. RESTASIS [Suspect]
     Active Substance: CYCLOSPORINE
     Indication: DRY EYE
     Dosage: 2 GTT, UNK
     Route: 047

REACTIONS (1)
  - Vitreous floaters [Not Recovered/Not Resolved]
